FAERS Safety Report 10348604 (Version 1)
Quarter: 2014Q3

REPORT INFORMATION
  Report Type: Spontaneous
  Country: US (occurrence: US)
  Receive Date: 20140729
  Receipt Date: 20140729
  Transmission Date: 20150326
  Serious: Yes (Life-Threatening, Hospitalization, Other)
  Sender: FDA-Public Use
  Company Number: US-ELI_LILLY_AND_COMPANY-US201407009116

PATIENT
  Sex: Female

DRUGS (3)
  1. HUMULIN 70/30 [Suspect]
     Active Substance: INSULIN HUMAN
     Dosage: UNK
     Route: 065
  2. HUMULIN 70/30 [Suspect]
     Active Substance: INSULIN HUMAN
     Indication: DIABETES MELLITUS
     Dosage: UNK
     Route: 065
     Dates: start: 1997
  3. TYLENOL CHILDREN^S [Concomitant]

REACTIONS (13)
  - Throat tightness [Recovered/Resolved]
  - Fluid retention [Unknown]
  - Ear neoplasm [Unknown]
  - Blood glucose increased [Unknown]
  - Abdominal distension [Unknown]
  - Blindness [Unknown]
  - Blister [Unknown]
  - Balance disorder [Unknown]
  - Hypoacusis [Unknown]
  - Oral infection [Unknown]
  - Mass [Unknown]
  - Fatigue [Unknown]
  - Fungal infection [Recovered/Resolved]

NARRATIVE: CASE EVENT DATE: 2008
